FAERS Safety Report 11264985 (Version 1)
Quarter: 2015Q3

REPORT INFORMATION
  Report Type: Spontaneous
  Country: US (occurrence: US)
  Receive Date: 20150713
  Receipt Date: 20150713
  Transmission Date: 20151125
  Serious: No
  Sender: FDA-Public Use
  Company Number: US-TEVA-577394ACC

PATIENT
  Age: 36 Year
  Sex: Female
  Weight: 67.19 kg

DRUGS (2)
  1. PLAN B ONE-STEP [Suspect]
     Active Substance: LEVONORGESTREL
     Indication: POST COITAL CONTRACEPTION
     Route: 048
     Dates: start: 20150708
  2. PRENATAL VITAMIN [Concomitant]
     Active Substance: VITAMINS
     Indication: BREAST FEEDING

REACTIONS (2)
  - Vomiting [Recovered/Resolved]
  - Exposure during breast feeding [Unknown]

NARRATIVE: CASE EVENT DATE: 20150708
